FAERS Safety Report 12383247 (Version 1)
Quarter: 2016Q2

REPORT INFORMATION
  Report Type: Spontaneous
  Country: CN (occurrence: CN)
  Receive Date: 20160518
  Receipt Date: 20160518
  Transmission Date: 20160815
  Serious: Yes (Other)
  Sender: FDA-Public Use
  Company Number: CN-FRESENIUS KABI-FK201602693

PATIENT
  Age: 24 Year
  Sex: Female
  Weight: 43 kg

DRUGS (5)
  1. ISOTRETINOIN [Concomitant]
     Active Substance: ISOTRETINOIN
  2. CLARITHROMYCINE [Concomitant]
     Active Substance: CLARITHROMYCIN
  3. DIFFERIN [Concomitant]
     Active Substance: ADAPALENE
  4. PROPOFOL (MANUFACTURER UNKNOWN) [Suspect]
     Active Substance: PROPOFOL
     Indication: INDUCTION OF ANAESTHESIA
     Route: 042
     Dates: start: 20150331, end: 20150331
  5. SPIRONOLACTONE. [Concomitant]
     Active Substance: SPIRONOLACTONE

REACTIONS (1)
  - Joint dislocation [Recovered/Resolved]

NARRATIVE: CASE EVENT DATE: 20150331
